FAERS Safety Report 9504798 (Version 3)
Quarter: 2013Q4

REPORT INFORMATION
  Report Type: Spontaneous
  Country: JP (occurrence: JP)
  Receive Date: 20130906
  Receipt Date: 20131105
  Transmission Date: 20140711
  Serious: Yes (Other)
  Sender: FDA-Public Use
  Company Number: JP-009507513-1308JPN015163

PATIENT
  Age: 43 Year
  Sex: Male
  Weight: 65 kg

DRUGS (23)
  1. TEMODAL [Suspect]
     Indication: ANAPLASTIC ASTROCYTOMA
     Dosage: 75 MG/M2, QD
     Route: 048
     Dates: start: 20120223, end: 20120405
  2. TEMODAL [Suspect]
     Dosage: 150 MG/M2, QD
     Route: 048
     Dates: start: 20120507, end: 20120511
  3. TEMODAL [Suspect]
     Dosage: 200 MG/M2, QD
     Route: 048
     Dates: start: 20120604, end: 20120608
  4. TEMODAL [Suspect]
     Dosage: 200 MG/M2, QD
     Route: 048
     Dates: start: 20120702, end: 20120706
  5. TEMODAL [Suspect]
     Dosage: 200 MG/M2, QD
     Route: 048
     Dates: start: 20120730, end: 20120803
  6. TEMODAL [Suspect]
     Dosage: 200 MG/M2, QD
     Route: 048
     Dates: start: 20120827, end: 20120831
  7. TEMODAL [Suspect]
     Dosage: 200 MG/M2, QD
     Route: 048
     Dates: start: 20120924, end: 20120928
  8. TEMODAL [Suspect]
     Dosage: 200 MG/M2, QD
     Route: 048
     Dates: start: 20121022, end: 20121026
  9. TEMODAL [Suspect]
     Dosage: 200 MG/M2, QD
     Route: 048
     Dates: start: 20121119, end: 20121123
  10. TEMODAL [Suspect]
     Dosage: 200 MG/M2, QD
     Route: 048
     Dates: start: 20121217, end: 20121221
  11. TEMODAL [Suspect]
     Dosage: 200 MG/M2, QD
     Route: 048
     Dates: start: 20130114, end: 20130118
  12. TEMODAL [Suspect]
     Dosage: 200 MG/M2, QD
     Route: 048
     Dates: start: 20130211, end: 20130215
  13. TEMODAL [Suspect]
     Dosage: 200 MG/M2, QD
     Route: 048
     Dates: start: 20130311, end: 20130315
  14. TEMODAL [Suspect]
     Dosage: 200 MG/M2, QD
     Route: 048
     Dates: start: 20130408, end: 20130412
  15. TEMODAL [Suspect]
     Dosage: 200 MG/M2, QD
     Route: 048
     Dates: start: 20130506, end: 20130510
  16. TEMODAL [Suspect]
     Dosage: 200 MG/M2, QD
     Route: 048
     Dates: start: 20130603, end: 20130607
  17. TEMODAL [Suspect]
     Dosage: 200 MG/M2, QD
     Route: 048
     Dates: start: 20130701, end: 20130705
  18. TEMODAL [Suspect]
     Dosage: 200 MG/M2, QD
     Route: 048
     Dates: start: 20130729, end: 20130803
  19. TEMODAL [Suspect]
     Dosage: 200 MG/M2, QD
     Route: 048
     Dates: start: 20130826, end: 20130830
  20. TEMODAL [Suspect]
     Dosage: 200 MG/M2, QD
     Route: 048
     Dates: start: 20130923, end: 20130927
  21. ZOFRAN ZYDIS [Suspect]
     Indication: VOMITING
     Dosage: 4 MG, QD
     Route: 048
     Dates: start: 20130223
  22. TAKEPRON [Suspect]
     Indication: HYPERCHLORHYDRIA
     Dosage: 15 MG, QD
     Route: 048
     Dates: start: 201202
  23. SELENICA R [Suspect]
     Indication: CONVULSION
     Dosage: 400 MG, BID
     Route: 048
     Dates: start: 201202

REACTIONS (1)
  - Hypoacusis [Not Recovered/Not Resolved]
